FAERS Safety Report 17694854 (Version 1)
Quarter: 2020Q2

REPORT INFORMATION
  Report Type: Spontaneous
  Country: US (occurrence: US)
  Receive Date: 20200422
  Receipt Date: 20200422
  Transmission Date: 20200714
  Serious: Yes (Hospitalization, Other)
  Sender: FDA-Public Use
  Company Number: US-PURDUE PHARMA-USA-2020-0150899

PATIENT
  Sex: Female

DRUGS (1)
  1. OXYCONTIN [Suspect]
     Active Substance: OXYCODONE HYDROCHLORIDE
     Indication: SPINAL DEFORMITY
     Dosage: 10 MG, TID
     Route: 048
     Dates: end: 2019

REACTIONS (5)
  - Memory impairment [Unknown]
  - Off label use [Recovered/Resolved]
  - Drug withdrawal syndrome [Unknown]
  - Hospitalisation [Unknown]
  - Drug dependence [Unknown]

NARRATIVE: CASE EVENT DATE: 2019
